FAERS Safety Report 7593461-0 (Version None)
Quarter: 2011Q3

REPORT INFORMATION
  Report Type: 
  Country: None (occurrence: None)
  Receive Date: 20110706
  Receipt Date: 20110627
  Transmission Date: 20111222
  Serious: Yes (Other)
  Sender: FDA-Public Use
  Company Number: FR-TEVA-285138ISR

PATIENT
  Sex: Female
  Weight: 50 kg

DRUGS (3)
  1. DIHYDROERGOTAMINE MESYLATE [Concomitant]
     Indication: ORTHOSTATIC HYPOTENSION
     Dosage: 10 MILLIGRAM;
     Route: 048
     Dates: start: 20110428
  2. PROPRANOLOL [Suspect]
     Indication: TACHYCARDIA
     Dosage: 20 MILLIGRAM; QUARTER A TABLET TWICE A DAY
     Route: 048
     Dates: start: 20110411
  3. TETRALYSAL [Suspect]
     Indication: ACNE
     Dosage: 600 MILLIGRAM;
     Route: 048
     Dates: start: 20110301

REACTIONS (6)
  - CYANOSIS [None]
  - TACHYCARDIA [None]
  - MALAISE [None]
  - LIVER DISORDER [None]
  - BLOOD ALKALINE PHOSPHATASE INCREASED [None]
  - HYPOTENSION [None]
